FAERS Safety Report 7331044-8 (Version None)
Quarter: 2011Q1

REPORT INFORMATION
  Report Type: 
  Country: None (occurrence: None)
  Receive Date: 20110304
  Receipt Date: 20110217
  Transmission Date: 20110831
  Serious: Yes (Death)
  Sender: FDA-Public Use
  Company Number: US-CELGENEUS-163-21880-11022248

PATIENT
  Sex: Male

DRUGS (12)
  1. KELP [Concomitant]
     Route: 065
  2. VITAMIN D [Concomitant]
     Route: 065
  3. IODINE [Concomitant]
     Route: 065
  4. MULTI-VITAMINS [Concomitant]
     Route: 065
  5. ZYFLO [Concomitant]
     Route: 065
  6. COQ10 [Concomitant]
     Route: 065
  7. NAHCO3 [Concomitant]
     Route: 065
  8. QUERCETIN [Concomitant]
     Route: 065
  9. PYROXIDENE [Concomitant]
     Route: 065
  10. REVLIMID [Suspect]
     Indication: MULTIPLE MYELOMA
     Dosage: 5 MILLIGRAM
     Route: 048
     Dates: start: 20110128
  11. FLUDROCORT [Concomitant]
     Route: 065
  12. POTASSIUM [Concomitant]
     Route: 065

REACTIONS (1)
  - DEATH [None]
